FAERS Safety Report 15758902 (Version 1)
Quarter: 2018Q4

REPORT INFORMATION
  Report Type: Report from Study
  Country: None (occurrence: US)
  Receive Date: 20181225
  Receipt Date: 20181225
  Transmission Date: 20190205
  Serious: Yes (Hospitalization, Other)
  Sender: FDA-Public Use
  Company Number: US-ABBVIE-18K-163-2503499-00

PATIENT
  Age: 57 Year
  Sex: Female

DRUGS (3)
  1. IRON [Concomitant]
     Active Substance: IRON
     Indication: PRODUCT USED FOR UNKNOWN INDICATION
  2. HUMIRA [Suspect]
     Active Substance: ADALIMUMAB
     Route: 058
     Dates: start: 201803, end: 20180803
  3. HUMIRA [Suspect]
     Active Substance: ADALIMUMAB
     Indication: CROHN^S DISEASE
     Dosage: LOADING DOSE
     Route: 058

REACTIONS (10)
  - Haemorrhagic anaemia [Unknown]
  - Urinary tract obstruction [Unknown]
  - Enterocutaneous fistula [Not Recovered/Not Resolved]
  - Gastrointestinal wall thickening [Unknown]
  - Small intestine adenocarcinoma [Not Recovered/Not Resolved]
  - Anaemia of chronic disease [Unknown]
  - Intestinal mucosal hypertrophy [Unknown]
  - Renal cyst [Unknown]
  - Abdominal abscess [Unknown]
  - Pericardial effusion [Unknown]

NARRATIVE: CASE EVENT DATE: 2018
